FAERS Safety Report 5344911-1 (Version None)
Quarter: 2007Q2

REPORT INFORMATION
  Report Type: 
  Country: None (occurrence: None)
  Receive Date: 20070417
  Receipt Date: 20060404
  Transmission Date: 20071010
  Serious: Yes (Hospitalization)
  Sender: FDA-Public Use
  Company Number: PHEH2006US04546

PATIENT

DRUGS (1)
  1. FORADIL [Suspect]
     Indication: ASTHMA
     Dosage: INHALATION
     Route: 055
     Dates: end: 20060301

REACTIONS (2)
  - HEART RATE INCREASED [None]
  - TACHYCARDIA [None]
